FAERS Safety Report 6634074-4 (Version None)
Quarter: 2010Q1

REPORT INFORMATION
  Report Type: 
  Country: None (occurrence: None)
  Receive Date: 20100225
  Receipt Date: 20090630
  Transmission Date: 20100710
  Serious: Yes (Other)
  Sender: FDA-Public Use
  Company Number: 640974

PATIENT
  Sex: Female
  Weight: 53.3 kg

DRUGS (6)
  1. ACCUTANE [Suspect]
     Indication: ACNE
     Dosage: 20 MG
     Dates: start: 20040301, end: 20040401
  2. AMNESTEEM [Suspect]
     Indication: ACNE
     Dosage: 20 MG
     Dates: start: 20040324, end: 20040627
  3. CELEXA [Concomitant]
  4. IRON SUPPLEMENT (IRON NOS) [Concomitant]
  5. MINOCYCLINE HCL [Concomitant]
  6. ZITHROMAX [Concomitant]

REACTIONS (14)
  - ABDOMINAL PAIN [None]
  - ANAEMIA [None]
  - ANXIETY [None]
  - CHAPPED LIPS [None]
  - COLITIS [None]
  - DRY EYE [None]
  - DRY SKIN [None]
  - DYSPEPSIA [None]
  - GASTROINTESTINAL DISORDER [None]
  - HEADACHE [None]
  - INFLAMMATORY BOWEL DISEASE [None]
  - LIP DRY [None]
  - NASAL DRYNESS [None]
  - RECTAL HAEMORRHAGE [None]
